FAERS Safety Report 6884133-6 (Version None)
Quarter: 2010Q3

REPORT INFORMATION
  Report Type: 
  Country: None (occurrence: None)
  Receive Date: 20100729
  Receipt Date: 20100618
  Transmission Date: 20110219
  Serious: No
  Sender: FDA-Public Use
  Company Number: US-BAYER-201026544NA

PATIENT
  Age: 57 Year
  Sex: Female
  Weight: 98 kg

DRUGS (4)
  1. ULTRAVIST (PHARMACY BULK) [Suspect]
     Indication: COMPUTERISED TOMOGRAM ABDOMEN
     Dosage: AS USED: 125 ML  UNIT DOSE: 500 ML
     Route: 042
     Dates: start: 20100618, end: 20100618
  2. PREDNISONE [Concomitant]
     Indication: PREMEDICATION
     Dosage: TOTAL DAILY DOSE: 100 MG
     Dates: start: 20100617, end: 20100617
  3. PREDNISONE [Concomitant]
     Dosage: AS USED: 50 MG
     Dates: start: 20100618, end: 20100618
  4. CONTRAST MEDIA [Concomitant]
     Indication: COMPUTERISED TOMOGRAM ABDOMEN
     Route: 048
     Dates: start: 20100618, end: 20100618

REACTIONS (1)
  - PRURITUS [None]
